FAERS Safety Report 6472108-0 (Version None)
Quarter: 2009Q4

REPORT INFORMATION
  Report Type: 
  Country: None (occurrence: None)
  Receive Date: 20091203
  Receipt Date: 20080416
  Transmission Date: 20100525
  Serious: Yes (Other)
  Sender: FDA-Public Use
  Company Number: FR-ELI_LILLY_AND_COMPANY-FR200804004201

PATIENT
  Age: 8 Year
  Sex: Male

DRUGS (1)
  1. HUMATROPE [Suspect]
     Indication: GROWTH RETARDATION
     Dosage: 0.2 MG/KG, UNK

REACTIONS (5)
  - APHASIA [None]
  - CEREBELLAR ATAXIA [None]
  - EXTRAPYRAMIDAL DISORDER [None]
  - HYPOTONIA [None]
  - NO THERAPEUTIC RESPONSE [None]
